FAERS Safety Report 13543775 (Version 2)
Quarter: 2017Q2

REPORT INFORMATION
  Report Type: Report from Study
  Country: DE (occurrence: DE)
  Receive Date: 20170515
  Receipt Date: 20170529
  Transmission Date: 20170830
  Serious: Yes (Hospitalization, Other)
  Sender: FDA-Public Use
  Company Number: DE-BRISTOL-MYERS SQUIBB COMPANY-BMS-2017-040838

PATIENT
  Age: 70 Year
  Sex: Male

DRUGS (8)
  1. KEPPRA [Concomitant]
     Active Substance: LEVETIRACETAM
     Indication: MALIGNANT NEOPLASM PROGRESSION
     Dosage: 1500 MG, UNK
     Route: 065
  2. NIVOLUMAB [Suspect]
     Active Substance: NIVOLUMAB
     Indication: RENAL CELL CARCINOMA
     Dosage: 3 MG/KG, Q2WK
     Route: 042
     Dates: start: 20170503
  3. NOVALGIN [Concomitant]
     Active Substance: METAMIZOLE SODIUM
     Indication: MALIGNANT NEOPLASM PROGRESSION
     Dosage: 1 DF, UNK
     Route: 065
  4. RAMIPRIL. [Concomitant]
     Active Substance: RAMIPRIL
     Indication: MALIGNANT NEOPLASM PROGRESSION
     Dosage: 5 MG, UNK
     Route: 065
  5. DEXAMETHASONE. [Concomitant]
     Active Substance: DEXAMETHASONE
     Indication: MALIGNANT NEOPLASM PROGRESSION
     Dosage: 4 MG, UNK
     Route: 065
  6. PANTOPRAZOL [Concomitant]
     Active Substance: PANTOPRAZOLE SODIUM
     Indication: MALIGNANT NEOPLASM PROGRESSION
     Dosage: 20 MG, UNK
     Route: 065
  7. MACROGOL [Concomitant]
     Active Substance: POLYETHYLENE GLYCOLS
     Indication: MALIGNANT NEOPLASM PROGRESSION
     Dosage: 1 DF, UNK
     Route: 065
  8. PALLADON [Concomitant]
     Active Substance: HYDROMORPHONE
     Indication: MALIGNANT NEOPLASM PROGRESSION
     Dosage: 16 MG, UNK
     Route: 065

REACTIONS (2)
  - Seizure [Recovered/Resolved]
  - Dyspnoea [Unknown]

NARRATIVE: CASE EVENT DATE: 20170506
